FAERS Safety Report 5241607-1 (Version None)
Quarter: 2007Q1

REPORT INFORMATION
  Report Type: 
  Country: None (occurrence: None)
  Receive Date: 20070215
  Receipt Date: 20070215
  Transmission Date: 20070707
  Serious: Yes (Other)
  Sender: FDA-Public Use
  Company Number: None

PATIENT
  Age: 24 Year
  Sex: Female
  Weight: 68.4932 kg

DRUGS (1)
  1. TRI-SPRINTEC [Suspect]
     Dosage: 1 TABLET DAILY PO
     Route: 048
     Dates: start: 20040101, end: 20061101

REACTIONS (2)
  - DRUG INEFFECTIVE [None]
  - PREGNANCY ON ORAL CONTRACEPTIVE [None]
